FAERS Safety Report 4971337-2 (Version None)
Quarter: 2006Q2

REPORT INFORMATION
  Report Type: 
  Country: None (occurrence: None)
  Receive Date: 20060406
  Receipt Date: 20060327
  Transmission Date: 20061013
  Serious: Yes (Disabling)
  Sender: FDA-Public Use
  Company Number: 2006JP000118

PATIENT
  Age: 66 Year
  Sex: Female
  Weight: 50 kg

DRUGS (6)
  1. PROGRAF [Suspect]
     Indication: RHEUMATOID ARTHRITIS
     Dosage: 1.5 MG/D
     Route: 048
  2. BREDININ (MIZORIBINE) TABLET [Suspect]
     Dosage: 50 MG, TID
     Route: 048
  3. CLINORIL (SULINDAC) TABLET [Concomitant]
  4. KELNAC (PLAUNOTOL) TABLET [Concomitant]
  5. BONALON (ALENDRONIC ACID) TABLET [Concomitant]
  6. FERROMIA (FERROUS CITRATE) TABLET [Concomitant]

REACTIONS (3)
  - ARTHRITIS BACTERIAL [None]
  - POSTOPERATIVE INFECTION [None]
  - STAPHYLOCOCCAL INFECTION [None]
